FAERS Safety Report 20965172 (Version 1)
Quarter: 2022Q2

REPORT INFORMATION
  Report Type: Spontaneous
  Country: DE (occurrence: DE)
  Receive Date: 20220616
  Receipt Date: 20220616
  Transmission Date: 20220721
  Serious: Yes (Death, Hospitalization, Other)
  Sender: FDA-Public Use
  Company Number: DE-BoehringerIngelheim-2022-BI-175913

PATIENT
  Sex: Male

DRUGS (2)
  1. JARDIANCE [Suspect]
     Active Substance: EMPAGLIFLOZIN
     Indication: Cardiac failure
  2. Covid-19 Vaccination [Concomitant]
     Indication: COVID-19 immunisation
     Dosage: FOUR TIMES

REACTIONS (15)
  - Multiple organ dysfunction syndrome [Fatal]
  - Cardiac failure [Fatal]
  - Pneumonia [Unknown]
  - Acute kidney injury [Unknown]
  - Ejection fraction decreased [Unknown]
  - Sepsis [Unknown]
  - Septic shock [Unknown]
  - Cardiorenal syndrome [Unknown]
  - Cardiogenic shock [Unknown]
  - Pulmonary hypertension [Unknown]
  - Congestive cardiomyopathy [Unknown]
  - Mitral valve incompetence [Unknown]
  - Tricuspid valve incompetence [Unknown]
  - Cardiovascular insufficiency [Unknown]
  - Inflammation [Unknown]
